FAERS Safety Report 5151771-0 (Version None)
Quarter: 2006Q4

REPORT INFORMATION
  Report Type: 
  Country: None (occurrence: None)
  Receive Date: 20061107
  Receipt Date: 20061023
  Transmission Date: 20070319
  Serious: Yes (Other)
  Sender: FDA-Public Use
  Company Number: B0444278A

PATIENT
  Age: 6 Year
  Sex: Male

DRUGS (2)
  1. FLUTICASONE PROPIONATE [Suspect]
     Indication: ASTHMA
     Dosage: 1000 MCG/PER DAY/INHALED
     Route: 055
  2. PREDNISOLONE [Concomitant]

REACTIONS (4)
  - ADRENAL INSUFFICIENCY [None]
  - ENCEPHALOPATHY [None]
  - HYPOGLYCAEMIA [None]
  - TONSILLITIS [None]
